FAERS Safety Report 7397006-X (Version None)
Quarter: 2011Q2

REPORT INFORMATION
  Report Type: 
  Country: None (occurrence: None)
  Receive Date: 20110406
  Receipt Date: 20110330
  Transmission Date: 20111010
  Serious: Yes (Death, Hospitalization, Other)
  Sender: FDA-Public Use
  Company Number: US-SANOFI-AVENTIS-2011SA020196

PATIENT
  Age: 88 Year
  Sex: Male

DRUGS (5)
  1. JEVTANA KIT [Suspect]
     Indication: PROSTATE CANCER
     Route: 041
     Dates: start: 20110316, end: 20110316
  2. ORAL ANTIDIABETICS [Concomitant]
  3. PREDNISONE [Concomitant]
  4. COREG [Concomitant]
  5. NEURONTIN [Concomitant]

REACTIONS (8)
  - PLATELET COUNT DECREASED [None]
  - DYSURIA [None]
  - ASTHENIA [None]
  - WHITE BLOOD CELL COUNT DECREASED [None]
  - BLOOD POTASSIUM INCREASED [None]
  - NEUTROPENIA [None]
  - CARDIAC ARREST [None]
  - BLOOD SODIUM DECREASED [None]
